FAERS Safety Report 6269901-6 (Version None)
Quarter: 2009Q3

REPORT INFORMATION
  Report Type: 
  Country: None (occurrence: None)
  Receive Date: 20090716
  Receipt Date: 20070816
  Transmission Date: 20100115
  Serious: Yes (Other)
  Sender: FDA-Public Use
  Company Number: US-ASTRAZENECA-2006UW07825

PATIENT
  Age: 16521 Day
  Sex: Male
  Weight: 100.7 kg

DRUGS (10)
  1. SEROQUEL [Suspect]
     Route: 048
     Dates: start: 20040501, end: 20050401
  2. SEROQUEL [Suspect]
     Route: 048
     Dates: start: 20040702
  3. PROTONIX [Concomitant]
     Route: 065
  4. PHENYTOIN [Concomitant]
     Route: 065
  5. TIZANIDINE HCL [Concomitant]
     Dosage: 2 MG-300 MG
     Route: 065
  6. ZOLOFT [Concomitant]
     Dosage: 25 MG-100 MG
     Route: 065
  7. CLONAZEPAM [Concomitant]
     Dosage: 1 MG-3 MG
     Route: 065
  8. NEURONTIN [Concomitant]
     Dosage: 300-900 MG
     Route: 065
  9. PHENAZOPYRIDINE HCL TAB [Concomitant]
     Route: 065
  10. BACLOFEN [Concomitant]
     Dosage: 10 MG-20 MG
     Route: 065

REACTIONS (2)
  - DIABETES MELLITUS [None]
  - NEUROPATHY PERIPHERAL [None]
